FAERS Safety Report 25603845 (Version 1)
Quarter: 2025Q3

REPORT INFORMATION
  Report Type: Spontaneous
  Country: CA (occurrence: CA)
  Receive Date: 20250725
  Receipt Date: 20250725
  Transmission Date: 20251021
  Serious: Yes (Other)
  Sender: SANDOZ
  Company Number: CA-SANDOZ-SDZ2025CA052615

PATIENT
  Age: 73 Year
  Sex: Male

DRUGS (1)
  1. ADALIMUMAB [Suspect]
     Active Substance: ADALIMUMAB
     Indication: Crohn^s disease
     Dosage: 80 MG, QW
     Route: 058

REACTIONS (6)
  - Eye operation [Unknown]
  - Hip arthroplasty [Unknown]
  - Rash [Unknown]
  - Urticaria [Unknown]
  - Intentional dose omission [Unknown]
  - Intentional product use issue [Unknown]
